FAERS Safety Report 21558011 (Version 2)
Quarter: 2022Q4

REPORT INFORMATION
  Report Type: Spontaneous
  Country: JP (occurrence: JP)
  Receive Date: 20221106
  Receipt Date: 20221109
  Transmission Date: 20230113
  Serious: Yes (Life-Threatening, Hospitalization, Other)
  Sender: FDA-Public Use
  Company Number: None

PATIENT
  Age: 74 Year
  Sex: Male

DRUGS (2)
  1. PREDNISOLONE [Suspect]
     Active Substance: PREDNISOLONE
     Indication: Nephritic syndrome
     Dosage: 10 MILLIGRAM
     Route: 065
  2. PREDNISOLONE [Suspect]
     Active Substance: PREDNISOLONE
     Indication: Asthma
     Dosage: UNK (DOSE DECREASED)
     Route: 065

REACTIONS (18)
  - Pulmonary embolism [Unknown]
  - Acute respiratory failure [Recovered/Resolved]
  - Cerebral ischaemia [Recovered/Resolved]
  - Renal failure [Recovered/Resolved]
  - Non-alcoholic steatohepatitis [Unknown]
  - Loss of consciousness [Recovered/Resolved]
  - Hypogonadism [Unknown]
  - Multiple organ dysfunction syndrome [Unknown]
  - Hepatic cirrhosis [Unknown]
  - Rhabdomyolysis [Recovered/Resolved]
  - Adrenal insufficiency [Unknown]
  - Cellulitis [Recovered/Resolved]
  - Staphylococcal infection [Unknown]
  - Steroid diabetes [Unknown]
  - Myopathy [Unknown]
  - Septic shock [Recovered/Resolved]
  - Upper gastrointestinal haemorrhage [Unknown]
  - Immunosuppression [Unknown]
